FAERS Safety Report 5763743-3 (Version None)
Quarter: 2008Q2

REPORT INFORMATION
  Report Type: 
  Country: None (occurrence: None)
  Receive Date: 20080610
  Receipt Date: 20080604
  Transmission Date: 20081010
  Serious: Yes (Death, Hospitalization, Other)
  Sender: FDA-Public Use
  Company Number: US-BRISTOL-MYERS SQUIBB COMPANY-14211403

PATIENT
  Age: 63 Year
  Sex: Female

DRUGS (3)
  1. IXEMPRA KIT [Suspect]
     Indication: BREAST CANCER
     Route: 042
     Dates: start: 20080424, end: 20080515
  2. XELODA [Suspect]
  3. AVASTIN [Suspect]

REACTIONS (6)
  - COUGH [None]
  - DEATH [None]
  - FEBRILE NEUTROPENIA [None]
  - INFUSION RELATED REACTION [None]
  - SEPSIS [None]
  - UPPER RESPIRATORY TRACT INFECTION [None]
